FAERS Safety Report 17358367 (Version 1)
Quarter: 2020Q1

REPORT INFORMATION
  Report Type: Spontaneous
  Country: CA (occurrence: CA)
  Receive Date: 20200201
  Receipt Date: 20200201
  Transmission Date: 20200409
  Serious: Yes (Hospitalization)
  Sender: FDA-Public Use
  Company Number: CA-ROCHE-2530347

PATIENT
  Age: 75 Year
  Sex: Female

DRUGS (48)
  1. CELEBREX [Suspect]
     Active Substance: CELECOXIB
     Indication: ARTHRITIS
     Route: 048
  2. CELECOXIB. [Suspect]
     Active Substance: CELECOXIB
     Indication: ADENOMATOUS POLYPOSIS COLI
  3. GABAPENTIN. [Suspect]
     Active Substance: GABAPENTIN
     Indication: PRODUCT USED FOR UNKNOWN INDICATION
     Route: 048
  4. HYDROXYCHLOROQUINE [Suspect]
     Active Substance: HYDROXYCHLOROQUINE
     Indication: PRODUCT USED FOR UNKNOWN INDICATION
     Route: 065
  5. ERGOCALCIFEROL. [Concomitant]
     Active Substance: ERGOCALCIFEROL
     Route: 065
  6. FENTANYL. [Concomitant]
     Active Substance: FENTANYL
     Route: 065
  7. LOPERAMIDE [Concomitant]
     Active Substance: LOPERAMIDE
  8. OMEGA 3 [DOCOSAHEXAENOIC ACID;EICOSAPENTAENOIC ACID] [Concomitant]
     Active Substance: DOCONEXENT\ICOSAPENT
  9. ENBREL [Suspect]
     Active Substance: ETANERCEPT
     Indication: RHEUMATOID ARTHRITIS
     Route: 058
  10. NASONEX [Concomitant]
     Active Substance: MOMETASONE FUROATE
     Route: 065
  11. OXYCODONE TEREPHTHALATE [Concomitant]
     Active Substance: OXYCODONE TEREPHTHALATE
     Route: 065
  12. SODIUM [Concomitant]
     Active Substance: SODIUM
  13. TRAZODONE [Concomitant]
     Active Substance: TRAZODONE HYDROCHLORIDE
  14. NORTRIPTYLINE [Suspect]
     Active Substance: NORTRIPTYLINE
     Indication: PRODUCT USED FOR UNKNOWN INDICATION
     Route: 065
  15. SULFASALAZINE. [Suspect]
     Active Substance: SULFASALAZINE
     Indication: RHEUMATOID ARTHRITIS
     Route: 048
  16. BIOTIN [Concomitant]
     Active Substance: BIOTIN
  17. ACETAMINOPHEN. [Concomitant]
     Active Substance: ACETAMINOPHEN
     Route: 065
  18. ESOMEPRAZOLE. [Concomitant]
     Active Substance: ESOMEPRAZOLE MAGNESIUM
  19. FERROUS GLUCONATE [Concomitant]
     Active Substance: FERROUS GLUCONATE
     Route: 065
  20. LOMOTIL [Concomitant]
     Active Substance: ATROPINE SULFATE\DIPHENOXYLATE HYDROCHLORIDE
  21. THIAMINE HCL [Concomitant]
     Active Substance: THIAMINE HYDROCHLORIDE
  22. CELECOXIB. [Suspect]
     Active Substance: CELECOXIB
     Indication: ARTHRITIS
     Route: 048
  23. ORENCIA [Suspect]
     Active Substance: ABATACEPT
     Indication: RHEUMATOID ARTHRITIS
     Route: 058
  24. OXYCONTIN [Suspect]
     Active Substance: OXYCODONE HYDROCHLORIDE
     Indication: PRODUCT USED FOR UNKNOWN INDICATION
     Route: 065
  25. PLAQUENIL [Suspect]
     Active Substance: HYDROXYCHLOROQUINE SULFATE
     Indication: RHEUMATOID ARTHRITIS
     Route: 065
  26. ACTONEL [Concomitant]
     Active Substance: RISEDRONATE SODIUM
     Route: 065
  27. PANTOPRAZOLE [Concomitant]
     Active Substance: PANTOPRAZOLE
     Route: 065
  28. FENTANYL TRANSDERMAL SYSTEM [Suspect]
     Active Substance: FENTANYL
     Indication: PRODUCT USED FOR UNKNOWN INDICATION
     Route: 065
  29. SULFASALAZINE. [Suspect]
     Active Substance: SULFASALAZINE
     Route: 048
  30. CALCIUM [Concomitant]
     Active Substance: CALCIUM
     Route: 065
  31. NORTRIPTYLINE [Concomitant]
     Active Substance: NORTRIPTYLINE
     Route: 065
  32. OMEGA 3-6-9 [FISH OIL] [Concomitant]
     Route: 065
  33. VITAMIN A [RETINOL] [Concomitant]
     Active Substance: RETINOL
  34. ACTEMRA [Suspect]
     Active Substance: TOCILIZUMAB
     Indication: RHEUMATOID ARTHRITIS
     Route: 042
  35. APO-GABAPENTIN [Suspect]
     Active Substance: GABAPENTIN
     Indication: PRODUCT USED FOR UNKNOWN INDICATION
     Route: 065
  36. MYOCHRYSINE [Suspect]
     Active Substance: GOLD SODIUM THIOMALATE
     Indication: RHEUMATOID ARTHRITIS
     Route: 030
  37. ORENCIA [Suspect]
     Active Substance: ABATACEPT
     Route: 042
  38. ACLASTA [Concomitant]
     Active Substance: ZOLEDRONIC ACID
     Route: 065
  39. PREDNISONE. [Concomitant]
     Active Substance: PREDNISONE
  40. PYRIDOXINE [Concomitant]
     Active Substance: PYRIDOXINE
  41. ARAVA [Suspect]
     Active Substance: LEFLUNOMIDE
     Indication: PRODUCT USED FOR UNKNOWN INDICATION
     Route: 048
  42. METHOTREXATE. [Suspect]
     Active Substance: METHOTREXATE
     Indication: RHEUMATOID ARTHRITIS
     Route: 058
  43. ASCORBIC ACID. [Concomitant]
     Active Substance: ASCORBIC ACID
  44. FISH OIL [Concomitant]
     Active Substance: FISH OIL
     Route: 065
  45. ESOMEPRAZOLE. [Concomitant]
     Active Substance: ESOMEPRAZOLE MAGNESIUM
  46. TYLENOL [Concomitant]
     Active Substance: ACETAMINOPHEN
  47. VITAMIN B3 [Concomitant]
     Active Substance: NIACIN
     Route: 065
  48. XELJANZ [Concomitant]
     Active Substance: TOFACITINIB CITRATE

REACTIONS (43)
  - Arthropathy [Unknown]
  - Drug ineffective [Unknown]
  - Exostosis [Unknown]
  - Musculoskeletal stiffness [Unknown]
  - Pain in extremity [Unknown]
  - Rheumatoid arthritis [Unknown]
  - Epigastric discomfort [Unknown]
  - Mobility decreased [Unknown]
  - Bone cyst [Unknown]
  - Diarrhoea [Unknown]
  - Dry eye [Unknown]
  - Gastrointestinal disorder [Unknown]
  - Pain [Unknown]
  - Therapeutic product effect decreased [Unknown]
  - Cyst [Unknown]
  - Deafness neurosensory [Unknown]
  - Drug hypersensitivity [Unknown]
  - Drug intolerance [Unknown]
  - Infection [Unknown]
  - Blood creatinine increased [Unknown]
  - Blood magnesium increased [Unknown]
  - Blood potassium increased [Unknown]
  - Deformity [Unknown]
  - Joint swelling [Unknown]
  - Nausea [Unknown]
  - Osteosclerosis [Unknown]
  - Pleural thickening [Unknown]
  - Skin lesion [Unknown]
  - Sleep disorder [Unknown]
  - Arthralgia [Unknown]
  - Crohn^s disease [Unknown]
  - Fatigue [Unknown]
  - Presbyacusis [Unknown]
  - Adverse reaction [Unknown]
  - Hypersensitivity [Unknown]
  - Osteoarthritis [Unknown]
  - Osteopenia [Unknown]
  - Pleural fibrosis [Unknown]
  - Renal impairment [Unknown]
  - Adverse drug reaction [Unknown]
  - Hospitalisation [Unknown]
  - Myocardial infarction [Unknown]
  - Treatment failure [Unknown]
